FAERS Safety Report 20928954 (Version 5)
Quarter: 2023Q2

REPORT INFORMATION
  Report Type: Report from Study
  Country: US (occurrence: US)
  Receive Date: 20220608
  Receipt Date: 20230608
  Transmission Date: 20230721
  Serious: Yes (Other)
  Sender: FDA-Public Use
  Company Number: US-NOVARTISTESTPH-NVSC2022US130997

PATIENT
  Age: 52 Year
  Sex: Female

DRUGS (1)
  1. KESIMPTA [Suspect]
     Active Substance: OFATUMUMAB
     Indication: Relapsing-remitting multiple sclerosis
     Dosage: 20 MG, QMO
     Route: 058
     Dates: start: 202107

REACTIONS (11)
  - Relapsing multiple sclerosis [Unknown]
  - Hypoaesthesia [Unknown]
  - Arthritis [Unknown]
  - Joint noise [Recovered/Resolved]
  - Stress [Unknown]
  - Headache [Recovered/Resolved]
  - Weight decreased [Not Recovered/Not Resolved]
  - Cardiomegaly [Unknown]
  - Arterial occlusive disease [Unknown]
  - Depressed mood [Unknown]
  - Polyp [Unknown]

NARRATIVE: CASE EVENT DATE: 20220301
